FAERS Safety Report 7703657-2 (Version None)
Quarter: 2011Q3

REPORT INFORMATION
  Report Type: 
  Country: None (occurrence: None)
  Receive Date: 20110823
  Receipt Date: 20110817
  Transmission Date: 20111222
  Serious: Yes (Hospitalization, Other)
  Sender: FDA-Public Use
  Company Number: US-ASTRAZENECA-2011SE49297

PATIENT
  Age: 55 Year
  Sex: Female
  Weight: 74.8 kg

DRUGS (7)
  1. SEROQUEL [Suspect]
     Indication: DEPRESSION
     Route: 048
  2. SYNTHROID [Concomitant]
     Indication: THYROID DISORDER
  3. HYDROCODONE BITARTRATE [Concomitant]
     Indication: INTERVERTEBRAL DISC DISORDER
     Dosage: 10/500, 2 QID, PRN
  4. KLONOPIN [Concomitant]
     Indication: ANXIETY
  5. METOPROLOL [Concomitant]
     Indication: BLOOD PRESSURE ABNORMAL
     Dosage: DAILY
  6. KLONOPIN [Concomitant]
     Indication: DEPRESSION
  7. PRILOSEC OTC [Concomitant]
     Indication: GASTRIC DISORDER
     Dosage: DAILY

REACTIONS (2)
  - STAPHYLOCOCCAL INFECTION [None]
  - LIMB OPERATION [None]
